FAERS Safety Report 24094179 (Version 1)
Quarter: 2024Q3

REPORT INFORMATION
  Report Type: Spontaneous
  Country: CH (occurrence: CH)
  Receive Date: 20240716
  Receipt Date: 20240716
  Transmission Date: 20241017
  Serious: Yes (Hospitalization)
  Sender: CHEPLAPHARM
  Company Number: CH-ROCHE-10000020214

PATIENT
  Age: 62 Year
  Sex: Male

DRUGS (2)
  1. CAPECITABINE [Suspect]
     Active Substance: CAPECITABINE
     Indication: Rectal cancer
  2. SORAFENIB [Suspect]
     Active Substance: SORAFENIB
     Indication: Rectal cancer

REACTIONS (1)
  - Gastrointestinal stoma necrosis [Unknown]

NARRATIVE: CASE EVENT DATE: 20121009
